FAERS Safety Report 5538486-1 (Version None)
Quarter: 2007Q4

REPORT INFORMATION
  Report Type: 
  Country: None (occurrence: None)
  Receive Date: 20071208
  Receipt Date: 20061207
  Transmission Date: 20080405
  Serious: No
  Sender: FDA-Public Use
  Company Number: US-AMGEN-KDL203430

PATIENT
  Sex: Female
  Weight: 74.9 kg

DRUGS (12)
  1. ENBREL [Suspect]
     Indication: RHEUMATOID ARTHRITIS
     Route: 058
     Dates: start: 20030201
  2. PROTONIX [Concomitant]
     Route: 065
  3. METOPROLOL [Concomitant]
     Route: 065
  4. HYDROCHLOROTHIAZIDE [Concomitant]
     Route: 065
  5. ACYCLOVIR [Concomitant]
     Route: 065
  6. WELLBUTRIN [Concomitant]
     Route: 065
  7. INDOMETHACIN [Concomitant]
     Route: 065
  8. SULFASALAZIN [Concomitant]
     Route: 065
  9. CYCLOBENZAPRINE HCL [Concomitant]
     Route: 065
  10. AMBIEN [Concomitant]
     Route: 065
  11. ZOLPIDEM TARTRATE [Concomitant]
     Route: 065
  12. IRON [Concomitant]
     Route: 042

REACTIONS (1)
  - BASAL CELL CARCINOMA [None]
